FAERS Safety Report 9101173 (Version 2)
Quarter: 2013Q1

REPORT INFORMATION
  Report Type: Spontaneous
  Country: US (occurrence: US)
  Receive Date: 20130215
  Receipt Date: 20130222
  Transmission Date: 20140127
  Serious: Yes (Other)
  Sender: FDA-Public Use
  Company Number: US-FRI-1000042670

PATIENT
  Sex: Female
  Weight: 103 kg

DRUGS (8)
  1. ESCITALOPRAM [Suspect]
     Indication: DEPRESSION
     Dates: start: 20120529, end: 201206
  2. ESCITALOPRAM [Suspect]
     Indication: DEPRESSION
     Dates: start: 201206, end: 20120711
  3. CLOZARIL [Suspect]
     Indication: HALLUCINATION
     Dosage: 300 MG
     Route: 048
     Dates: start: 20120625, end: 20121012
  4. CLOZARIL [Suspect]
     Indication: SUICIDAL IDEATION
  5. CLOZARIL [Suspect]
     Indication: AGITATION
  6. CLOZARIL [Suspect]
     Indication: ANXIETY
  7. ESKALITH CR [Concomitant]
     Indication: MOOD SWINGS
     Dates: start: 20120503, end: 201207
  8. ESKALITH CR [Concomitant]
     Indication: ANGER

REACTIONS (1)
  - Obesity [Not Recovered/Not Resolved]
